FAERS Safety Report 4775260-8 (Version None)
Quarter: 2005Q3

REPORT INFORMATION
  Report Type: 
  Country: None (occurrence: None)
  Receive Date: 20050921
  Receipt Date: 20050921
  Transmission Date: 20060218
  Serious: No
  Sender: FDA-Public Use
  Company Number: None

PATIENT
  Age: 66 Year
  Sex: Female

DRUGS (4)
  1. OXALIPLATIN (ELOXATIN ) LOT # 763331 [Suspect]
     Indication: COLON CANCER
     Dosage: 148 MG IV INFUSION OVER 2 HRS
     Route: 042
     Dates: start: 20050830
  2. CF [Concomitant]
  3. KYTRIL [Concomitant]
  4. FLUOROURACIL [Concomitant]

REACTIONS (4)
  - COUGH [None]
  - DYSPNOEA [None]
  - FLUSHING [None]
  - NAUSEA [None]
